FAERS Safety Report 13845514 (Version 1)
Quarter: 2017Q3

REPORT INFORMATION
  Report Type: Spontaneous
  Country: US (occurrence: US)
  Receive Date: 20170808
  Receipt Date: 20170808
  Transmission Date: 20171127
  Serious: No
  Sender: FDA-Public Use
  Company Number: US-ROCHE-792375

PATIENT
  Sex: Female

DRUGS (1)
  1. BONIVA [Suspect]
     Active Substance: IBANDRONATE SODIUM
     Indication: PRODUCT USED FOR UNKNOWN INDICATION
     Dosage: DOSE, FORM, ROUTE AND FREQUENCY NOT REPORTED
     Route: 065

REACTIONS (6)
  - Musculoskeletal discomfort [Unknown]
  - Burning sensation [Unknown]
  - Pain in extremity [Unknown]
  - Myalgia [Unknown]
  - Groin pain [Unknown]
  - Bone pain [Unknown]
